FAERS Safety Report 12800585 (Version 3)
Quarter: 2016Q4

REPORT INFORMATION
  Report Type: Report from Study
  Country: None (occurrence: US)
  Receive Date: 20160930
  Receipt Date: 20161216
  Transmission Date: 20170207
  Serious: Yes (Hospitalization, Other)
  Sender: FDA-Public Use
  Company Number: US-ABBVIE-16P-163-1743990-00

PATIENT
  Age: 59 Year
  Sex: Male

DRUGS (4)
  1. LASIX [Concomitant]
     Active Substance: FUROSEMIDE
     Indication: PRODUCT USED FOR UNKNOWN INDICATION
     Route: 048
     Dates: start: 20160407
  2. VIEKIRA PAK [Suspect]
     Active Substance: DASABUVIR\OMBITASVIR\PARITAPREVIR\RITONAVIR
     Indication: HEPATITIS C
     Dosage: 12.5-75-50-250MG 2 PINK QD IN AM, 1 BEIGE BID
     Route: 048
     Dates: start: 20160328, end: 20160528
  3. RIBAVIRIN. [Suspect]
     Active Substance: RIBAVIRIN
     Indication: HEPATITIS C
     Route: 048
  4. LACTULOSE. [Concomitant]
     Active Substance: LACTULOSE
     Indication: PRODUCT USED FOR UNKNOWN INDICATION
     Route: 048
     Dates: start: 20160407

REACTIONS (9)
  - Liver disorder [Unknown]
  - Polyp [Unknown]
  - Abdominal pain upper [Unknown]
  - Headache [Unknown]
  - Amnesia [Not Recovered/Not Resolved]
  - Pruritus [Unknown]
  - Nephrolithiasis [Unknown]
  - Haematochezia [Unknown]
  - Confusional state [Unknown]

NARRATIVE: CASE EVENT DATE: 201604
